FAERS Safety Report 17197098 (Version 2)
Quarter: 2020Q1

REPORT INFORMATION
  Report Type: Spontaneous
  Country: JP (occurrence: JP)
  Receive Date: 20191224
  Receipt Date: 20200127
  Transmission Date: 20200409
  Serious: Yes (Hospitalization)
  Sender: FDA-Public Use
  Company Number: JP-CELGENEUS-JPN-20190705538

PATIENT
  Sex: Female

DRUGS (4)
  1. LENADEX [Suspect]
     Active Substance: DEXAMETHASONE ACETATE
     Indication: PRODUCT USED FOR UNKNOWN INDICATION
     Dosage: UNKNOWN
     Route: 048
  2. REVLIMID [Suspect]
     Active Substance: LENALIDOMIDE
     Route: 048
  3. REVLIMID [Suspect]
     Active Substance: LENALIDOMIDE
     Indication: PRODUCT USED FOR UNKNOWN INDICATION
     Route: 048
  4. BENAMBAX [Suspect]
     Active Substance: PENTAMIDINE
     Indication: INFECTION PROPHYLAXIS
     Dosage: UNKNOWN
     Route: 055

REACTIONS (3)
  - Rash [Recovered/Resolved]
  - Electrocardiogram abnormal [Recovered/Resolved]
  - Physical deconditioning [Recovered/Resolved]
